FAERS Safety Report 8552704-7 (Version None)
Quarter: 2012Q3

REPORT INFORMATION
  Report Type: 
  Country: None (occurrence: None)
  Receive Date: 20120731
  Receipt Date: 20120717
  Transmission Date: 20120928
  Serious: Yes (Other)
  Sender: FDA-Public Use
  Company Number: US-MYLANLABS-2012S1014885

PATIENT
  Age: 71 Year
  Sex: Male

DRUGS (3)
  1. DONEPEZIL HCL [Suspect]
     Dosage: 5MG DAILY
     Route: 065
  2. DONEPEZIL HCL [Suspect]
     Dosage: 10MG
     Route: 065
  3. QUETIAPINE [Concomitant]
     Dosage: AT BEDTIME
     Route: 065

REACTIONS (1)
  - MANIA [None]
